FAERS Safety Report 9818293 (Version 1)
Quarter: 2013Q4

REPORT INFORMATION
  Report Type: Spontaneous
  Country: US (occurrence: None)
  Receive Date: 20131223
  Receipt Date: 20131223
  Transmission Date: 20140711
  Serious: No
  Sender: FDA-Public Use
  Company Number: 221928

PATIENT
  Sex: Male

DRUGS (1)
  1. PICATO GEL [Suspect]
     Dosage: (1 IN 1 D, TOPICAL
     Route: 061
     Dates: start: 20130513, end: 20130316

REACTIONS (4)
  - Application site erythema [None]
  - Incorrect drug administration duration [None]
  - Incorrect product storage [None]
  - Off label use [None]
